FAERS Safety Report 26068384 (Version 2)
Quarter: 2025Q4

REPORT INFORMATION
  Report Type: Spontaneous
  Country: US (occurrence: US)
  Receive Date: 20251120
  Receipt Date: 20251222
  Transmission Date: 20260119
  Serious: No
  Sender: LEO PHARM
  Company Number: US-LEO Pharma-384239

PATIENT
  Age: 90 Year
  Sex: Male

DRUGS (13)
  1. ADBRY [Suspect]
     Active Substance: TRALOKINUMAB-LDRM
     Indication: Eczema
     Dosage: TWO SHOTS
     Dates: start: 20251007
  2. ADBRY [Suspect]
     Active Substance: TRALOKINUMAB-LDRM
     Indication: Eczema
     Dosage: SECOND TREATMENT
     Dates: start: 20251021
  3. ADBRY [Suspect]
     Active Substance: TRALOKINUMAB-LDRM
     Indication: Eczema
     Dosage: 3RD TREATMENT
     Dates: start: 20251105
  4. ADBRY [Suspect]
     Active Substance: TRALOKINUMAB-LDRM
     Indication: Eczema
     Route: 058
  5. ADBRY [Suspect]
     Active Substance: TRALOKINUMAB-LDRM
     Indication: Dermatitis atopic
     Dosage: TWO SHOTS
     Dates: start: 20251007
  6. ADBRY [Suspect]
     Active Substance: TRALOKINUMAB-LDRM
     Indication: Dermatitis atopic
     Dosage: SECOND TREATMENT
     Dates: start: 20251021
  7. ADBRY [Suspect]
     Active Substance: TRALOKINUMAB-LDRM
     Indication: Dermatitis atopic
     Dosage: 3RD TREATMENT
     Dates: start: 20251105
  8. ADBRY [Suspect]
     Active Substance: TRALOKINUMAB-LDRM
     Indication: Dermatitis atopic
     Route: 058
  9. PANTOPRAZOLE [Concomitant]
     Active Substance: PANTOPRAZOLE
     Indication: Product used for unknown indication
  10. ATORVASTATIN [Concomitant]
     Active Substance: ATORVASTATIN
     Indication: Product used for unknown indication
  11. ASPIRIN [Concomitant]
     Active Substance: ASPIRIN
     Indication: Product used for unknown indication
  12. FOLIC ACID [Concomitant]
     Active Substance: FOLIC ACID
     Indication: Product used for unknown indication
  13. LISINOPRIL [Concomitant]
     Active Substance: LISINOPRIL
     Indication: Product used for unknown indication
     Dosage: 2.5 MG

REACTIONS (8)
  - Blister [Unknown]
  - Rash erythematous [Unknown]
  - Pruritus [Unknown]
  - Skin tightness [Unknown]
  - Pain in extremity [Unknown]
  - Feeling hot [Unknown]
  - Skin haemorrhage [Unknown]
  - Erythema [Unknown]
